FAERS Safety Report 4479427-8 (Version None)
Quarter: 2004Q4

REPORT INFORMATION
  Report Type: 
  Country: None (occurrence: None)
  Receive Date: 20041015
  Receipt Date: 20041005
  Transmission Date: 20050328
  Serious: Yes (Hospitalization, Other)
  Sender: FDA-Public Use
  Company Number: US-2004-032175

PATIENT
  Age: 69 Year
  Sex: Male
  Weight: 92.5 kg

DRUGS (12)
  1. FLUDARA [Suspect]
     Indication: CHRONIC LYMPHOCYTIC LEUKAEMIA
     Dosage: SEE IMAGE
     Route: 042
     Dates: start: 20030319, end: 20030321
  2. FLUDARA [Suspect]
     Indication: CHRONIC LYMPHOCYTIC LEUKAEMIA
     Dosage: SEE IMAGE
     Route: 042
     Dates: start: 20030401
  3. CYCLOPHOSPHAMIDE [Suspect]
     Indication: CHRONIC LYMPHOCYTIC LEUKAEMIA
     Dosage: SEE IMAGE
     Route: 042
     Dates: start: 20030319, end: 20030321
  4. CYCLOPHOSPHAMIDE [Suspect]
     Indication: CHRONIC LYMPHOCYTIC LEUKAEMIA
     Dosage: SEE IMAGE
     Route: 042
     Dates: start: 20030401
  5. ATENOLOL [Concomitant]
  6. ERYTHROPOEITIN (ERYTHROPOEITIN) [Concomitant]
  7. IMMUNE GLOBULIN INTRAVENOUS (HUMAN) [Concomitant]
  8. ALLOPURINOL [Concomitant]
  9. SULFAMETHOXAZOLE + TRIMETHOPRIM [Concomitant]
  10. VALACYCLOVIR HCL [Concomitant]
  11. FILGRASTIM (FILGRASTIM) [Concomitant]
  12. ACETAMINOPHEN [Concomitant]

REACTIONS (14)
  - ABDOMINAL DISTENSION [None]
  - BLOOD PRESSURE SYSTOLIC INCREASED [None]
  - BLOOD UREA INCREASED [None]
  - BLOOD URINE [None]
  - CHILLS [None]
  - CONDITION AGGRAVATED [None]
  - HERPES ZOSTER [None]
  - INGUINAL MASS [None]
  - LYMPHOEDEMA [None]
  - MALIGNANT PLEURAL EFFUSION [None]
  - OEDEMA PERIPHERAL [None]
  - RESPIRATORY RATE INCREASED [None]
  - SEPSIS [None]
  - VOMITING [None]
